FAERS Safety Report 4519501-0 (Version None)
Quarter: 2004Q4

REPORT INFORMATION
  Report Type: 
  Country: None (occurrence: None)
  Receive Date: 20041101
  Receipt Date: 20040405
  Transmission Date: 20050328
  Serious: Yes (Other)
  Sender: FDA-Public Use
  Company Number: HQWYE369206APR04

PATIENT
  Age: 50 Year
  Sex: Female
  Weight: 50.39 kg

DRUGS (3)
  1. PREMARIN [Suspect]
     Indication: MENOPAUSE
     Dosage: 0.625 MG TABLET DAILY, ORAL
     Route: 048
     Dates: start: 19960101, end: 20040301
  2. PROVERA [Concomitant]
  3. ZIAC (BIOSPROLOL/HYDROCHLOROTHIAZIDE) [Concomitant]

REACTIONS (5)
  - CONDITION AGGRAVATED [None]
  - FEELING ABNORMAL [None]
  - HYPERHIDROSIS [None]
  - MIGRAINE [None]
  - VULVOVAGINAL DRYNESS [None]
